FAERS Safety Report 4773960-7 (Version None)
Quarter: 2005Q3

REPORT INFORMATION
  Report Type: 
  Country: None (occurrence: None)
  Receive Date: 20050919
  Receipt Date: 20050909
  Transmission Date: 20060218
  Serious: Yes (Other)
  Sender: FDA-Public Use
  Company Number: 2005-06-2355

PATIENT
  Age: 48 Year
  Sex: Female
  Weight: 64.8644 kg

DRUGS (5)
  1. PEG-INTRON [Suspect]
     Indication: HEPATITIS C
     Dosage: 120 MCG QW SUBCUTANEOUS
     Route: 058
     Dates: start: 20040417, end: 20050312
  2. RIBAVIRIN [Suspect]
     Indication: HEPATITIS C
     Dosage: 1200 MG QD ORAL
     Route: 048
     Dates: start: 20040417, end: 20050312
  3. LISINOPRIL [Concomitant]
  4. HYDROCHLOROTHIAZIDE [Concomitant]
  5. PROCRIT [Concomitant]

REACTIONS (4)
  - ANAEMIA [None]
  - BLOOD IRON DECREASED [None]
  - GENERALISED OEDEMA [None]
  - PROTEIN URINE PRESENT [None]
